FAERS Safety Report 5928282-5 (Version None)
Quarter: 2008Q4

REPORT INFORMATION
  Report Type: 
  Country: None (occurrence: None)
  Receive Date: 20081022
  Receipt Date: 20081022
  Transmission Date: 20090506
  Serious: No
  Sender: FDA-Public Use
  Company Number: None

PATIENT
  Age: 5 Year
  Sex: Female
  Weight: 21.7727 kg

DRUGS (2)
  1. SINGULAIR [Suspect]
     Indication: ASTHMA
     Dosage: 5MG Q HS PO, ON AND OFF 2 YEARS
     Route: 048
     Dates: start: 20070701, end: 20081019
  2. SINGULAIR [Suspect]
     Indication: MULTIPLE ALLERGIES
     Dosage: 5MG Q HS PO, ON AND OFF 2 YEARS
     Route: 048
     Dates: start: 20070701, end: 20081019

REACTIONS (3)
  - ABDOMINAL PAIN UPPER [None]
  - EAR INFECTION [None]
  - HEADACHE [None]
